FAERS Safety Report 7275456-X (Version None)
Quarter: 2011Q1

REPORT INFORMATION
  Report Type: 
  Country: None (occurrence: None)
  Receive Date: 20110202
  Receipt Date: 20110202
  Transmission Date: 20110831
  Serious: Yes (Life-Threatening, Hospitalization)
  Sender: FDA-Public Use
  Company Number: None

PATIENT
  Age: 41 Year
  Sex: Male

DRUGS (1)
  1. CHLORDIAZEPOXIDE [Suspect]
     Indication: ALCOHOL WITHDRAWAL SYNDROME
     Dosage: 50 MG Q 4 HOURS PO
     Route: 048
     Dates: start: 20101214, end: 20101214

REACTIONS (6)
  - SINUSITIS [None]
  - BLOOD BILIRUBIN INCREASED [None]
  - ANGIOEDEMA [None]
  - ALANINE AMINOTRANSFERASE INCREASED [None]
  - DYSPHAGIA [None]
  - ASPARTATE AMINOTRANSFERASE INCREASED [None]
